FAERS Safety Report 18511361 (Version 1)
Quarter: 2020Q4

REPORT INFORMATION
  Report Type: Spontaneous
  Country: DK (occurrence: DK)
  Receive Date: 20201117
  Receipt Date: 20201117
  Transmission Date: 20210114
  Serious: Yes (Hospitalization)
  Sender: FDA-Public Use
  Company Number: NVSC2020DK301651

PATIENT
  Age: 12 Year
  Sex: Male
  Weight: 42.6 kg

DRUGS (1)
  1. METHYLPHENIDATE [METHYLPHENIDATE HYDROCHLORIDE] [Suspect]
     Active Substance: METHYLPHENIDATE HYDROCHLORIDE
     Indication: ATTENTION DEFICIT HYPERACTIVITY DISORDER
     Dosage: 36 MG, QD
     Route: 048
     Dates: start: 20200525, end: 20200903

REACTIONS (3)
  - Product substitution issue [Unknown]
  - Pica [Recovered/Resolved]
  - Impulsive behaviour [Recovered/Resolved]

NARRATIVE: CASE EVENT DATE: 20200810
